FAERS Safety Report 8446564-2 (Version None)
Quarter: 2012Q2

REPORT INFORMATION
  Report Type: 
  Country: None (occurrence: None)
  Receive Date: 20120618
  Receipt Date: 20120611
  Transmission Date: 20120825
  Serious: Yes (Hospitalization, Other)
  Sender: FDA-Public Use
  Company Number: CA-TEVA-343647USA

PATIENT
  Sex: Male
  Weight: 80.1 kg

DRUGS (2)
  1. WARFARIN SODIUM [Concomitant]
     Route: 048
  2. TREANDA [Suspect]
     Indication: NON-HODGKIN'S LYMPHOMA
     Route: 042
     Dates: start: 20120313, end: 20120314

REACTIONS (3)
  - PNEUMONIA [None]
  - HYPOXIA [None]
  - DYSPNOEA [None]
